FAERS Safety Report 13301305 (Version 1)
Quarter: 2017Q1

REPORT INFORMATION
  Report Type: Spontaneous
  Country: US (occurrence: US)
  Receive Date: 20170306
  Receipt Date: 20170306
  Transmission Date: 20170428
  Serious: Yes (Disabling)
  Sender: FDA-Public Use
  Company Number: None

PATIENT
  Age: 59 Year
  Sex: Female
  Weight: 72 kg

DRUGS (12)
  1. DULOXETINE 60 MG CAP [Suspect]
     Active Substance: DULOXETINE
     Indication: BACK PAIN
     Dosage: ?          QUANTITY:30 CAPSULE(S);?
     Route: 048
     Dates: start: 20170302, end: 20170306
  2. IRON [Concomitant]
     Active Substance: IRON
  3. DULOXETINE 60 MG CAP [Suspect]
     Active Substance: DULOXETINE
     Indication: DEPRESSION
     Dosage: ?          QUANTITY:30 CAPSULE(S);?
     Route: 048
     Dates: start: 20170302, end: 20170306
  4. MULTI VITAMIN [Concomitant]
     Active Substance: VITAMINS
  5. VITAMIN D [Concomitant]
     Active Substance: CHOLECALCIFEROL
  6. CALCIUM CITRATE [Concomitant]
     Active Substance: CALCIUM CITRATE
  7. VITAMIN B12 [Concomitant]
     Active Substance: CYANOCOBALAMIN
  8. DULOXETINE 60 MG CAP [Suspect]
     Active Substance: DULOXETINE
     Indication: ANXIETY
     Dosage: ?          QUANTITY:30 CAPSULE(S);?
     Route: 048
     Dates: start: 20170302, end: 20170306
  9. TRAZODONE [Concomitant]
     Active Substance: TRAZODONE HYDROCHLORIDE
  10. CYMBALTA [Concomitant]
     Active Substance: DULOXETINE HYDROCHLORIDE
  11. STATIN [Concomitant]
     Active Substance: UNSPECIFIED INGREDIENT
  12. FISH OIL [Concomitant]
     Active Substance: FISH OIL

REACTIONS (10)
  - Gastrointestinal disorder [None]
  - Dizziness [None]
  - Sleep disorder [None]
  - Withdrawal syndrome [None]
  - Anger [None]
  - Tremor [None]
  - Feelings of worthlessness [None]
  - Nasopharyngitis [None]
  - Asthenia [None]
  - Personal relationship issue [None]

NARRATIVE: CASE EVENT DATE: 20170306
